FAERS Safety Report 17313062 (Version 1)
Quarter: 2020Q1

REPORT INFORMATION
  Report Type: Spontaneous
  Country: CA (occurrence: CA)
  Receive Date: 20200124
  Receipt Date: 20200124
  Transmission Date: 20200409
  Serious: Yes (Hospitalization, Other)
  Sender: FDA-Public Use
  Company Number: CA-AUROBINDO-AUR-APL-2020-003550

PATIENT
  Age: 71 Year
  Sex: Female
  Weight: 116 kg

DRUGS (2)
  1. CIPROFLOXACIN. [Suspect]
     Active Substance: CIPROFLOXACIN
     Indication: KIDNEY INFECTION
     Dosage: UNK, TWO TIMES A DAY
     Route: 065
  2. REMICADE [Suspect]
     Active Substance: INFLIXIMAB
     Indication: CROHN^S DISEASE
     Dosage: 600 MILLIGRAM
     Route: 042

REACTIONS (6)
  - Fall [Recovered/Resolved]
  - Gastrointestinal infection [Recovered/Resolved]
  - Crohn^s disease [Recovered/Resolved]
  - Kidney infection [Recovered/Resolved]
  - Gastric infection [Recovered/Resolved]
  - Diarrhoea [Recovered/Resolved]
